FAERS Safety Report 8791314 (Version 1)
Quarter: 2012Q4

REPORT INFORMATION
  Report Type: Spontaneous
  Country: US (occurrence: None)
  Receive Date: 20120911
  Receipt Date: 20120911
  Transmission Date: 20130627
  Serious: Yes (Hospitalization)
  Sender: FDA-Public Use
  Company Number: USA/USA/11/0021238

PATIENT
  Age: 30 Month
  Sex: Male

DRUGS (1)
  1. AMLODIPINE BESYLATE [Suspect]

REACTIONS (1)
  - Angioedema [None]
